FAERS Safety Report 6749346-2 (Version None)
Quarter: 2010Q2

REPORT INFORMATION
  Report Type: 
  Country: None (occurrence: None)
  Receive Date: 20100601
  Receipt Date: 20100518
  Transmission Date: 20101027
  Serious: Yes (Other)
  Sender: FDA-Public Use
  Company Number: US-ROCHE-692590

PATIENT
  Sex: Female

DRUGS (1)
  1. BONIVA [Suspect]
     Indication: DRUG USE FOR UNKNOWN INDICATION
     Route: 048
     Dates: start: 20050101

REACTIONS (5)
  - ARTHROPATHY [None]
  - BONE DENSITY DECREASED [None]
  - BONE DISORDER [None]
  - BONE SWELLING [None]
  - DRUG INEFFECTIVE [None]
